FAERS Safety Report 6863091-4 (Version None)
Quarter: 2010Q3

REPORT INFORMATION
  Report Type: 
  Country: None (occurrence: None)
  Receive Date: 20100721
  Receipt Date: 20100711
  Transmission Date: 20110219
  Serious: Yes (Hospitalization)
  Sender: FDA-Public Use
  Company Number: US-JNJFOC-20100703145

PATIENT
  Age: 3 Week
  Weight: 3.18 kg

DRUGS (2)
  1. CONCENTRATED TYLENOL INFANT DROPS [Suspect]
     Indication: PYREXIA
     Route: 048
  2. CONCENTRATED TYLENOL INFANT DROPS [Suspect]
     Indication: INJECTION
     Route: 048

REACTIONS (3)
  - MALAISE [None]
  - PRODUCT QUALITY ISSUE [None]
  - RESPIRATORY ARREST [None]
